FAERS Safety Report 20722167 (Version 1)
Quarter: 2022Q2

REPORT INFORMATION
  Report Type: Report from Study
  Country: AU (occurrence: AU)
  Receive Date: 20220418
  Receipt Date: 20220418
  Transmission Date: 20220720
  Serious: Yes (Life-Threatening, Hospitalization, Other)
  Sender: FDA-Public Use
  Company Number: AU-FEDR-MF-002-1011002-20210525-0002SG

PATIENT
  Age: 74 Year
  Sex: Male
  Weight: 75 kg

DRUGS (16)
  1. RUXOLITINIB [Suspect]
     Active Substance: RUXOLITINIB
     Indication: Myelofibrosis
     Route: 048
     Dates: start: 20210331, end: 20210914
  2. ALLOPURINOL [Concomitant]
     Active Substance: ALLOPURINOL
     Indication: Gout
     Dosage: 400 MG?ONGOING
     Route: 048
     Dates: start: 2019
  3. ALLOPURINOL [Concomitant]
     Active Substance: ALLOPURINOL
     Dosage: 300 MG
     Route: 048
     Dates: start: 20210921
  4. LOPERAMIDE HYDROCHLORIDE [Concomitant]
     Active Substance: LOPERAMIDE HYDROCHLORIDE
     Indication: Diarrhoea
     Dosage: 2 MG?FREQUENCY : PRN??ONGOING
     Route: 048
     Dates: start: 2019
  5. MAGNESIUM [Concomitant]
     Active Substance: MAGNESIUM
     Indication: Muscle spasms
     Dosage: 500 MG??ONGOING
     Route: 048
     Dates: start: 202003
  6. PANTOPRAZOLE [Concomitant]
     Active Substance: PANTOPRAZOLE
     Indication: Dyspepsia
     Route: 048
     Dates: start: 202001
  7. PANTOPRAZOLE [Concomitant]
     Active Substance: PANTOPRAZOLE
     Dosage: 20 MG
     Route: 048
     Dates: start: 20210906, end: 20211014
  8. ZINC [Concomitant]
     Active Substance: ZINC
     Indication: Prophylaxis
     Dosage: 50 MG?ONGOING
     Route: 048
     Dates: start: 202003
  9. IVERMECTIN [Concomitant]
     Active Substance: IVERMECTIN
     Indication: Rash
     Route: 061
     Dates: start: 20210803
  10. THIAMINE [Concomitant]
     Active Substance: THIAMINE
     Indication: Prophylaxis
     Route: 048
     Dates: start: 20211001
  11. BEROCCA [Concomitant]
     Active Substance: VITAMINS
     Indication: Prophylaxis
     Dosage: 1 TABLET X 1 X 2 DAYS
     Dates: start: 202003
  12. COLXY WITH SENNA [Concomitant]
     Indication: Prophylaxis
     Dosage: 2 TABLET X 1 X 1 DAYS
     Dates: start: 20211013, end: 20211015
  13. HYDROXYUREA [Concomitant]
     Active Substance: HYDROXYUREA
     Indication: Myelofibrosis
     Dates: start: 20210921, end: 20211001
  14. HYDROXYUREA [Concomitant]
     Active Substance: HYDROXYUREA
     Dosage: 1000 MG X 3 X 1 DAYS
     Dates: start: 20211013, end: 20211014
  15. INDOMETHACIN [Concomitant]
     Active Substance: INDOMETHACIN
     Indication: Gout
     Dates: start: 20210413
  16. ONDANSETRON [Concomitant]
     Active Substance: ONDANSETRON
     Indication: Prophylaxis
     Dosage: FREQUENCY TEXT: PRN
     Route: 060
     Dates: start: 20211013, end: 20211021

REACTIONS (2)
  - Tumour lysis syndrome [Recovered/Resolved]
  - Hypocalcaemia [Not Recovered/Not Resolved]

NARRATIVE: CASE EVENT DATE: 20211001
